FAERS Safety Report 15067147 (Version 1)
Quarter: 2018Q2

REPORT INFORMATION
  Report Type: Spontaneous
  Country: US (occurrence: US)
  Receive Date: 20180606
  Receipt Date: 20180606
  Transmission Date: 20180711
  Serious: Yes (Hospitalization)
  Sender: FDA-Public Use
  Company Number: None

PATIENT
  Age: 51 Year
  Sex: Female

DRUGS (2)
  1. ELIQUIS [Concomitant]
     Active Substance: APIXABAN
  2. PULMOZYME [Suspect]
     Active Substance: DORNASE ALFA
     Indication: CYSTIC FIBROSIS
     Dosage: 1 VIAL TWICE A DAY INHALED
     Route: 055
     Dates: start: 20131119

REACTIONS (3)
  - Cystic fibrosis [None]
  - Condition aggravated [None]
  - Deep vein thrombosis [None]

NARRATIVE: CASE EVENT DATE: 20180521
